FAERS Safety Report 7439676-3 (Version None)
Quarter: 2011Q2

REPORT INFORMATION
  Report Type: 
  Country: None (occurrence: None)
  Receive Date: 20110427
  Receipt Date: 20110414
  Transmission Date: 20111010
  Serious: Yes (Other)
  Sender: FDA-Public Use
  Company Number: PHHY2011DE31058

PATIENT
  Age: 63 Year
  Sex: Female

DRUGS (1)
  1. AREDIA [Suspect]
     Dosage: UNK
     Route: 042

REACTIONS (1)
  - OSTEONECROSIS OF JAW [None]
